FAERS Safety Report 5103400-X (Version None)
Quarter: 2006Q3

REPORT INFORMATION
  Report Type: 
  Country: None (occurrence: None)
  Receive Date: 20060731
  Receipt Date: 20060321
  Transmission Date: 20061208
  Serious: Yes (Other)
  Sender: FDA-Public Use
  Company Number: US-JNJFOC-20060305744

PATIENT
  Age: 76 Year
  Sex: Female

DRUGS (4)
  1. RISPERDAL [Suspect]
     Indication: DEMENTIA
     Dosage: ORAL
     Route: 048
  2. INSULIN () INSULIN [Concomitant]
  3. LEVOSTATIN () LOVASTATIN [Concomitant]
  4. CELEXA [Concomitant]

REACTIONS (3)
  - ABASIA [None]
  - CEREBROVASCULAR ACCIDENT [None]
  - MOBILITY DECREASED [None]
